FAERS Safety Report 9215731 (Version 3)
Quarter: 2013Q2

REPORT INFORMATION
  Report Type: Spontaneous
  Country: US (occurrence: US)
  Receive Date: 20130408
  Receipt Date: 20130619
  Transmission Date: 20140414
  Serious: Yes (Hospitalization)
  Sender: FDA-Public Use
  Company Number: US-BIOGENIDEC-2013BI030780

PATIENT
  Age: 61 Year
  Sex: Female

DRUGS (1)
  1. AVONEX [Suspect]
     Indication: MULTIPLE SCLEROSIS
     Route: 030
     Dates: start: 20130206, end: 201303

REACTIONS (5)
  - Malaise [Unknown]
  - Aphasia [Recovered/Resolved with Sequelae]
  - Abasia [Recovered/Resolved with Sequelae]
  - Infection [Recovered/Resolved]
  - Bronchitis [Recovered/Resolved]
